FAERS Safety Report 6258872-4 (Version None)
Quarter: 2009Q3

REPORT INFORMATION
  Report Type: 
  Country: None (occurrence: None)
  Receive Date: 20090707
  Receipt Date: 20090630
  Transmission Date: 20100115
  Serious: Yes (Hospitalization, Disabling)
  Sender: FDA-Public Use
  Company Number: US-ASTRAZENECA-2009UW18304

PATIENT
  Age: 12 Year
  Sex: Male

DRUGS (5)
  1. SEROQUEL [Suspect]
     Route: 048
  2. SEROQUEL [Suspect]
     Route: 048
  3. CLONIDINE [Concomitant]
     Route: 065
  4. ATIVAN [Concomitant]
     Route: 065
  5. RISPERIDONE [Concomitant]
     Route: 065

REACTIONS (2)
  - AKATHISIA [None]
  - HOSPITALISATION [None]
